FAERS Safety Report 20025700 (Version 1)
Quarter: 2021Q4

REPORT INFORMATION
  Report Type: Spontaneous
  Country: US (occurrence: US)
  Receive Date: 20211102
  Receipt Date: 20211102
  Transmission Date: 20220303
  Serious: Yes (Other)
  Sender: FDA-Public Use
  Company Number: US-LUPIN PHARMACEUTICALS INC.-2021-21178

PATIENT
  Age: 55 Year
  Sex: Female

DRUGS (2)
  1. METHYLPREDNISOLONE [Suspect]
     Active Substance: METHYLPREDNISOLONE
     Indication: Optic neuropathy
     Dosage: 1 GRAM, TID
     Route: 042
  2. METHYLPREDNISOLONE [Suspect]
     Active Substance: METHYLPREDNISOLONE
     Indication: Endocrine ophthalmopathy
     Dosage: 500 MILLIGRAM, WEEKLY
     Route: 042

REACTIONS (5)
  - Drug resistance [Unknown]
  - Off label use [Unknown]
  - Confusional state [Unknown]
  - Tremor [Unknown]
  - Insomnia [Unknown]
